FAERS Safety Report 21684921 (Version 2)
Quarter: 2022Q4

REPORT INFORMATION
  Report Type: Spontaneous
  Country: US (occurrence: US)
  Receive Date: 20221205
  Receipt Date: 20221223
  Transmission Date: 20230113
  Serious: No
  Sender: FDA-Public Use
  Company Number: US-GLAXOSMITHKLINE-US2022178556

PATIENT
  Sex: Female

DRUGS (1)
  1. ZEJULA [Suspect]
     Active Substance: NIRAPARIB
     Indication: Ovarian cancer
     Dosage: 300 MG, QD
     Dates: start: 20221115, end: 20221127

REACTIONS (7)
  - Platelet count decreased [Recovered/Resolved]
  - Hypertension [Unknown]
  - Nausea [Unknown]
  - Fatigue [Recovering/Resolving]
  - Dysphagia [Unknown]
  - Haemoglobin decreased [Recovered/Resolved]
  - Therapeutic response unexpected [Unknown]
